FAERS Safety Report 6518737-7 (Version None)
Quarter: 2009Q4

REPORT INFORMATION
  Report Type: 
  Country: None (occurrence: None)
  Receive Date: 20091218
  Receipt Date: 20091211
  Transmission Date: 20100525
  Serious: No
  Sender: FDA-Public Use
  Company Number: LTI2009A00307

PATIENT
  Age: 58 Year
  Sex: Male

DRUGS (4)
  1. ACTOPLUS MET [Suspect]
     Indication: INSULIN-REQUIRING TYPE 2 DIABETES MELLITUS
     Dosage: 2 OF (1 DF,2 IN 1 D), ORAL
     Route: 048
     Dates: start: 20080528, end: 20090904
  2. LANSOPRAZOLE [Concomitant]
  3. LANTUS [Concomitant]
  4. FENOFIBRATE [Concomitant]

REACTIONS (9)
  - CHEST DISCOMFORT [None]
  - DIPLEGIA [None]
  - GAIT DISTURBANCE [None]
  - INDURATION [None]
  - MYALGIA [None]
  - PARAESTHESIA [None]
  - PHARYNGEAL OEDEMA [None]
  - RESPIRATORY DISORDER [None]
  - WEIGHT INCREASED [None]
